FAERS Safety Report 13558186 (Version 1)
Quarter: 2017Q2

REPORT INFORMATION
  Report Type: Spontaneous
  Country: TR (occurrence: TR)
  Receive Date: 20170517
  Receipt Date: 20170517
  Transmission Date: 20170830
  Serious: Yes (Death)
  Sender: FDA-Public Use
  Company Number: TR-IMPAX LABORATORIES, INC-2017-IPXL-01323

PATIENT
  Age: 70 Year
  Sex: Male

DRUGS (3)
  1. IMIPENEM [Concomitant]
     Active Substance: IMIPENEM
     Indication: NECROTISING FASCIITIS
     Dosage: UNK
     Route: 065
  2. CLINDAMYCIN HYDROCHLORIDE. [Suspect]
     Active Substance: CLINDAMYCIN HYDROCHLORIDE
     Indication: NECROTISING FASCIITIS
     Dosage: UNK
     Route: 065
  3. AMPICILLIN AND SULBACTAM [Concomitant]
     Active Substance: AMPICILLIN SODIUM\SULBACTAM SODIUM
     Indication: NECROTISING FASCIITIS
     Dosage: UNK
     Route: 065

REACTIONS (2)
  - Sepsis [Fatal]
  - Multiple organ dysfunction syndrome [Fatal]
